FAERS Safety Report 21320096 (Version 2)
Quarter: 2023Q2

REPORT INFORMATION
  Report Type: Spontaneous
  Country: US (occurrence: US)
  Receive Date: 20220911
  Receipt Date: 20230504
  Transmission Date: 20230722
  Serious: No
  Sender: FDA-Public Use
  Company Number: US-SA-SAC20220905001119

PATIENT
  Age: 16 Year
  Sex: Female

DRUGS (1)
  1. DUPIXENT [Suspect]
     Active Substance: DUPILUMAB
     Dosage: DOSE: 300MG FREQUENCY: OTHER
     Route: 058

REACTIONS (3)
  - Dry skin [Unknown]
  - Wrist fracture [Unknown]
  - Pruritus [Unknown]

NARRATIVE: CASE EVENT DATE: 20220830
